FAERS Safety Report 11610555 (Version 1)
Quarter: 2015Q4

REPORT INFORMATION
  Report Type: Spontaneous
  Country: US (occurrence: None)
  Receive Date: 20151006
  Receipt Date: 20151006
  Transmission Date: 20160304
  Serious: Yes (Other)
  Sender: FDA-Public Use
  Company Number: 54973 AE # 1643

PATIENT
  Age: 71 Year
  Sex: Male

DRUGS (2)
  1. CALMS FORTE 4 KIDS [Suspect]
     Active Substance: HOMEOPATHICS
     Indication: TENSION
     Dosage: 2 TABS PO AT BEDTIME X 3
     Route: 048
  2. CALMS FORTE 4 KIDS [Suspect]
     Active Substance: HOMEOPATHICS
     Indication: INSOMNIA
     Dosage: 2 TABS PO AT BEDTIME X 3
     Route: 048

REACTIONS (1)
  - Blood urine present [None]

NARRATIVE: CASE EVENT DATE: 20150915
